FAERS Safety Report 8155581-1 (Version None)
Quarter: 2012Q1

REPORT INFORMATION
  Report Type: 
  Country: None (occurrence: None)
  Receive Date: 20120222
  Receipt Date: 20120214
  Transmission Date: 20120608
  Serious: Yes (Hospitalization)
  Sender: FDA-Public Use
  Company Number: US-BAYER-2011-041169

PATIENT
  Age: 38 Year
  Sex: Female
  Weight: 81.633 kg

DRUGS (3)
  1. YASMIN [Suspect]
     Indication: PREMENSTRUAL SYNDROME
     Dosage: UNK
     Dates: start: 20050509, end: 20070702
  2. TORADOL [Concomitant]
  3. REGLAN [Concomitant]

REACTIONS (15)
  - MOOD SWINGS [None]
  - GASTROINTESTINAL DISORDER [None]
  - WEIGHT INCREASED [None]
  - HORMONE LEVEL ABNORMAL [None]
  - PORTAL VEIN THROMBOSIS [None]
  - EMOTIONAL DISTRESS [None]
  - ABDOMINAL DISCOMFORT [None]
  - ASTHENIA [None]
  - ABDOMINAL PAIN [None]
  - CHOLECYSTITIS CHRONIC [None]
  - DEPRESSION [None]
  - ANXIETY [None]
  - GENERAL PHYSICAL HEALTH DETERIORATION [None]
  - HEADACHE [None]
  - GALLBLADDER DISORDER [None]
